FAERS Safety Report 6265321-9 (Version None)
Quarter: 2009Q3

REPORT INFORMATION
  Report Type: 
  Country: None (occurrence: None)
  Receive Date: 20090713
  Receipt Date: 20090701
  Transmission Date: 20100115
  Serious: Yes (Hospitalization)
  Sender: FDA-Public Use
  Company Number: JP-ELI_LILLY_AND_COMPANY-JP200906005113

PATIENT
  Age: 59 Year
  Sex: Male

DRUGS (5)
  1. ALIMTA [Suspect]
     Indication: NON-SMALL CELL LUNG CANCER
     Dosage: 790 MG, OTHER
     Route: 042
     Dates: start: 20090604, end: 20090604
  2. FOLIAMIN [Concomitant]
     Dosage: 0.5 MG, DAILY (1/D)
     Route: 048
     Dates: start: 20090527
  3. CYANOCOBALAMIN [Concomitant]
     Dosage: 1 MG, OTHER
     Route: 030
     Dates: start: 20090527
  4. DEPAS [Concomitant]
     Indication: SLEEP DISORDER
     Dosage: 1 MG, UNK
     Route: 048
  5. EURODIN [Concomitant]
     Indication: INSOMNIA
     Dosage: 1 MG, UNK
     Route: 048

REACTIONS (1)
  - HYPOAESTHESIA [None]
